FAERS Safety Report 9436080 (Version 1)
Quarter: 2013Q3

REPORT INFORMATION
  Report Type: Spontaneous
  Country: DE (occurrence: DE)
  Receive Date: 20130801
  Receipt Date: 20130801
  Transmission Date: 20140515
  Serious: Yes (Death, Other)
  Sender: FDA-Public Use
  Company Number: GXKR2013DE002575

PATIENT
  Age: 1 Day
  Sex: 0

DRUGS (1)
  1. VENLAFAXINE [Suspect]
     Dosage: MATERNAL DOSE (0.-32. GESTATIONAL WEEK): 2X150MG/DAY
     Route: 064

REACTIONS (2)
  - Death neonatal [Fatal]
  - Foetal exposure during pregnancy [Unknown]
